FAERS Safety Report 10461113 (Version 2)
Quarter: 2014Q3

REPORT INFORMATION
  Report Type: Spontaneous
  Country: US (occurrence: US)
  Receive Date: 20140918
  Receipt Date: 20140922
  Transmission Date: 20150326
  Serious: No
  Sender: FDA-Public Use
  Company Number: US-BAYER-2014-139131

PATIENT
  Sex: Female

DRUGS (1)
  1. MIDOL [Suspect]
     Active Substance: IBUPROFEN
     Indication: MIGRAINE
     Dosage: UNK, PRN
     Route: 048

REACTIONS (1)
  - Intentional product misuse [None]
